FAERS Safety Report 5678339-1 (Version None)
Quarter: 2008Q1

REPORT INFORMATION
  Report Type: 
  Country: None (occurrence: None)
  Receive Date: 20080320
  Receipt Date: 20080304
  Transmission Date: 20080703
  Serious: Yes (Other)
  Sender: FDA-Public Use
  Company Number: 2008SI001075

PATIENT
  Age: 21 Year
  Sex: Female
  Weight: 53.978 kg

DRUGS (3)
  1. AMNESTEEM [Suspect]
     Dosage: 40 MG; DAILY, ORAL;  40 MG; DAILY, ORAL;  40 MG; DAILY, ORAL
     Route: 048
     Dates: start: 20070108, end: 20070401
  2. AMNESTEEM [Suspect]
     Dosage: 40 MG; DAILY, ORAL;  40 MG; DAILY, ORAL;  40 MG; DAILY, ORAL
     Route: 048
     Dates: start: 20070601, end: 20070801
  3. AMNESTEEM [Suspect]
     Dosage: 40 MG; DAILY, ORAL;  40 MG; DAILY, ORAL;  40 MG; DAILY, ORAL
     Route: 048
     Dates: start: 20071001, end: 20071230

REACTIONS (5)
  - ANTEPARTUM HAEMORRHAGE [None]
  - DEPRESSION [None]
  - DRUG DOSE OMISSION [None]
  - DRUG EXPOSURE DURING PREGNANCY [None]
  - PREGNANCY [None]
